FAERS Safety Report 16003471 (Version 2)
Quarter: 2019Q1

REPORT INFORMATION
  Report Type: Spontaneous
  Country: DE (occurrence: DE)
  Receive Date: 20190226
  Receipt Date: 20190311
  Transmission Date: 20190418
  Serious: Yes (Other)
  Sender: FDA-Public Use
  Company Number: DE-AUROBINDO-AUR-APL-2019-008793

PATIENT

DRUGS (1)
  1. SERTRALINE [Suspect]
     Active Substance: SERTRALINE HYDROCHLORIDE
     Dosage: UNK
     Route: 065

REACTIONS (17)
  - Irritability [Unknown]
  - Affect lability [Unknown]
  - Restlessness [Unknown]
  - Tinnitus [Unknown]
  - Insomnia [Unknown]
  - Vaginal discharge [Unknown]
  - Back pain [Unknown]
  - Hypoaesthesia [Unknown]
  - Dissociative disorder [Unknown]
  - Salivary hypersecretion [Unknown]
  - Nightmare [Unknown]
  - Obsessive thoughts [Unknown]
  - Dysgeusia [Unknown]
  - Dizziness postural [Unknown]
  - Suicidal ideation [Unknown]
  - Angina pectoris [Unknown]
  - Chest pain [Unknown]

NARRATIVE: CASE EVENT DATE: 201812
